FAERS Safety Report 8793872 (Version 3)
Quarter: 2013Q1

REPORT INFORMATION
  Report Type: Spontaneous
  Country: US (occurrence: US)
  Receive Date: 20120917
  Receipt Date: 20130301
  Transmission Date: 20140127
  Serious: Yes (Other)
  Sender: FDA-Public Use
  Company Number: US-ROCHE-1116128

PATIENT
  Age: 39 Year
  Sex: Female
  Weight: 106.24 kg

DRUGS (6)
  1. RITUXAN [Suspect]
     Indication: RHEUMATOID ARTHRITIS
     Dosage: 3RD INFUSION FOR 30 MIN AT 13 CC PER HOUR ON 30/AUG/2012
     Route: 065
     Dates: start: 20100630, end: 20100830
  2. RITUXAN [Suspect]
     Route: 065
  3. METFORMIN [Concomitant]
     Indication: DIABETES MELLITUS
     Route: 048
  4. ZOCOR [Concomitant]
  5. TOPROL XL [Concomitant]
     Route: 048
  6. CELEXA [Concomitant]
     Route: 065

REACTIONS (5)
  - Dizziness [Recovered/Resolved]
  - Palpitations [Recovered/Resolved]
  - Loss of consciousness [Recovered/Resolved]
  - Hypertension [Recovered/Resolved]
  - Tachycardia [Recovered/Resolved]
